FAERS Safety Report 5351961-8 (Version None)
Quarter: 2007Q2

REPORT INFORMATION
  Report Type: 
  Country: None (occurrence: None)
  Receive Date: 20070611
  Receipt Date: 20070530
  Transmission Date: 20071010
  Serious: Yes (Hospitalization, Other)
  Sender: FDA-Public Use
  Company Number: NL-JNJFOC-20070600075

PATIENT
  Sex: Male
  Weight: 75 kg

DRUGS (10)
  1. INFLIXIMAB, RECOMBINANT [Suspect]
     Route: 042
  2. INFLIXIMAB, RECOMBINANT [Suspect]
     Indication: RHEUMATOID ARTHRITIS
     Route: 042
  3. CHOP [Suspect]
     Indication: NON-HODGKIN'S LYMPHOMA
  4. RITUXIMAB [Suspect]
     Indication: NON-HODGKIN'S LYMPHOMA
  5. METHOTREXATE SODIUM [Concomitant]
  6. FOLIC ACID [Concomitant]
  7. OMEPRAZOLE [Concomitant]
     Indication: GASTRIC DISORDER
  8. ATENOLOL [Concomitant]
     Indication: HYPERTENSION
  9. LONOXIN [Concomitant]
     Indication: ATRIAL FIBRILLATION
  10. MARCUMAR [Concomitant]
     Indication: ATRIAL FIBRILLATION

REACTIONS (2)
  - GRANULOCYTOPENIA [None]
  - NON-HODGKIN'S LYMPHOMA STAGE I [None]
